FAERS Safety Report 10219332 (Version 3)
Quarter: 2014Q2

REPORT INFORMATION
  Report Type: Report from Study
  Country: IN (occurrence: IN)
  Receive Date: 20140605
  Receipt Date: 20140620
  Transmission Date: 20141212
  Serious: Yes (Hospitalization, Other)
  Sender: FDA-Public Use
  Company Number: PHHY2014IN036452

PATIENT
  Sex: Male
  Weight: 61 kg

DRUGS (10)
  1. CO-DIOVAN [Suspect]
     Indication: HYPERTENSION
     Dosage: 1 DF, QD (160 MG)
     Route: 048
  2. INSULIN [Concomitant]
     Indication: DIABETES MELLITUS
     Dosage: 16 U, QD (IN THE MORNING)
  3. GLYCOMET [Concomitant]
     Indication: DIABETES MELLITUS
     Dosage: UNK UKN, QD (GLYCOMET P2 AT NIGHT AND GLYCOMET P3 IN MORNING)
     Route: 048
  4. ETIREST [Concomitant]
     Dosage: 1 DF, TID (ONE TABLET AT 6 AM, ONE TABLET AT 12 PM, ONE TABLET AT 5 PM)
     Route: 048
  5. GLYCOMET GP [Concomitant]
     Indication: BLOOD GLUCOSE ABNORMAL
     Dosage: UNK UKN, UNK
     Route: 048
  6. RACIPER [Concomitant]
     Indication: HYPERCHLORHYDRIA
     Dosage: UNK UKN, UNK (40 MG)
     Route: 048
  7. TARGET                             /00486601/ [Concomitant]
     Indication: BLOOD PRESSURE ABNORMAL
     Dosage: UNK UKN, UNK (80)
     Route: 048
  8. LEVIPIL [Concomitant]
     Indication: CEREBROVASCULAR ACCIDENT
     Dosage: UNK UKN, UNK (750 MG)
     Route: 048
  9. TRIKA [Concomitant]
     Indication: SLEEP DISORDER
     Dosage: (25 MG)
  10. LACTIHEP [Concomitant]
     Indication: DIARRHOEA
     Dosage: UNK UKN, UNK (15 ML)

REACTIONS (5)
  - Hypertension [Recovered/Resolved]
  - Convulsion [Recovered/Resolved]
  - Blood pressure fluctuation [Not Recovered/Not Resolved]
  - Blood glucose fluctuation [Recovered/Resolved]
  - Asthenia [Recovered/Resolved]
